FAERS Safety Report 10251879 (Version 1)
Quarter: 2014Q2

REPORT INFORMATION
  Report Type: Spontaneous
  Country: US (occurrence: None)
  Receive Date: 20140619
  Receipt Date: 20140619
  Transmission Date: 20141212
  Serious: Yes (Other)
  Sender: FDA-Public Use
  Company Number: 2014-19746

PATIENT
  Age: 52 Year
  Sex: Male

DRUGS (2)
  1. EYLEA (AFLIBERCEPT) INJECTION)AFLIBERCEPT) [Suspect]
     Indication: AGE-RELATED MACULAR DEGENERATION
     Dosage: BILATERAL INJECTIONS, OM, INTRAOCULAR
     Route: 031
  2. RANIBIZUMAB [Suspect]
     Indication: AGE-RELATED MACULAR DEGENERATION
     Dosage: BILATERAL INJECTIONS, OM, INTRACOULAR
     Route: 031

REACTIONS (5)
  - Proteinuria [None]
  - Renal failure acute [None]
  - Complications of transplanted kidney [None]
  - Thrombotic microangiopathy [None]
  - Complement factor abnormal [None]
